FAERS Safety Report 11255744 (Version 1)
Quarter: 2015Q3

REPORT INFORMATION
  Report Type: Spontaneous
  Country: US (occurrence: US)
  Receive Date: 20150709
  Receipt Date: 20150709
  Transmission Date: 20151125
  Serious: No
  Sender: FDA-Public Use
  Company Number: US-009507513-1507USA003078

PATIENT
  Age: 65 Year
  Sex: Male
  Weight: 78.46 kg

DRUGS (20)
  1. CHOLECALCIFEROL [Concomitant]
     Active Substance: CHOLECALCIFEROL
     Indication: VITAMIN D DEFICIENCY
     Dosage: TOTAL DAILY DOSE 2000 UNITS
     Route: 048
     Dates: start: 20120620
  2. HYDROCHLOROTHIAZIDE. [Concomitant]
     Active Substance: HYDROCHLOROTHIAZIDE
     Dosage: 25 MG, QD
     Route: 048
     Dates: start: 20110908
  3. POLYVINYL ALCOHOL (+) POVIDONE [Concomitant]
     Dosage: UNK
     Dates: start: 20121025
  4. LIDEX [Concomitant]
     Active Substance: FLUOCINONIDE
     Dosage: UNK
     Dates: start: 20120208
  5. ROMIDEPSIN [Concomitant]
     Active Substance: ROMIDEPSIN
     Dosage: UNK
     Dates: start: 20130906, end: 20130906
  6. ZOLINZA [Suspect]
     Active Substance: VORINOSTAT
     Indication: MYCOSIS FUNGOIDES
     Dosage: 400 MG, QD
     Route: 048
     Dates: start: 20140627, end: 20140831
  7. DESONIDE. [Concomitant]
     Active Substance: DESONIDE
     Dosage: UNK
     Dates: start: 20120308
  8. INVESTIGATIONAL DRUG (UNSPECIFIED) [Concomitant]
     Active Substance: INVESTIGATIONAL PRODUCT
     Route: 058
     Dates: start: 20130605, end: 20130605
  9. INVESTIGATIONAL DRUG (UNSPECIFIED) [Concomitant]
     Active Substance: INVESTIGATIONAL PRODUCT
     Route: 058
     Dates: start: 20130731, end: 20130731
  10. OAT. [Concomitant]
     Active Substance: OAT
     Dosage: UNK
     Dates: start: 20120312
  11. HYDROPHILIC OINTMENT HOEI [Concomitant]
     Dosage: UNK
     Dates: start: 20120312
  12. PEGINTERFERON ALFA-2B [Suspect]
     Active Substance: PEGINTERFERON ALFA-2B
     Indication: CHEMOTHERAPY
     Dosage: 90 MICROGRAM, QW
     Route: 058
     Dates: start: 20140606, end: 20140831
  13. INVESTIGATIONAL DRUG (UNSPECIFIED) [Concomitant]
     Active Substance: INVESTIGATIONAL PRODUCT
     Indication: PROPHYLAXIS
     Route: 058
     Dates: start: 20130705, end: 20130705
  14. INVESTIGATIONAL DRUG (UNSPECIFIED) [Concomitant]
     Active Substance: INVESTIGATIONAL PRODUCT
     Route: 058
     Dates: start: 20130424, end: 20130424
  15. FERROUS SULFATE [Concomitant]
     Active Substance: FERROUS SULFATE\FERROUS SULFATE, DRIED
     Indication: IRON DEFICIENCY
     Dosage: 325 MG, TID
     Route: 048
     Dates: start: 20130307
  16. LATANOPROST. [Concomitant]
     Active Substance: LATANOPROST
     Dosage: UNK
     Route: 047
     Dates: start: 20130506
  17. CETIRIZINE HYDROCHLORIDE. [Concomitant]
     Active Substance: CETIRIZINE HYDROCHLORIDE
     Indication: SEASONAL ALLERGY
     Dosage: 10 MG, QD
     Route: 048
     Dates: start: 20120403
  18. CLOBETASOL PROPIONATE. [Concomitant]
     Active Substance: CLOBETASOL PROPIONATE
     Dosage: UNK
     Dates: start: 20090817
  19. FLUOCINONIDE. [Concomitant]
     Active Substance: FLUOCINONIDE
     Dosage: UNK
     Dates: start: 20090727
  20. KETOTIFEN FUMARATE. [Concomitant]
     Active Substance: KETOTIFEN FUMARATE
     Dosage: UNK
     Dates: start: 20121025

REACTIONS (1)
  - Drug intolerance [Unknown]

NARRATIVE: CASE EVENT DATE: 201408
